FAERS Safety Report 5753076-3 (Version None)
Quarter: 2008Q2

REPORT INFORMATION
  Report Type: 
  Country: None (occurrence: None)
  Receive Date: 20080527
  Receipt Date: 20080516
  Transmission Date: 20081010
  Serious: Yes (Death, Hospitalization, Other)
  Sender: FDA-Public Use
  Company Number: 2008-01198

PATIENT
  Age: 70 Year
  Sex: Female
  Weight: 80 kg

DRUGS (18)
  1. VELCADE [Suspect]
     Indication: MULTIPLE MYELOMA
     Dosage: 2.21MG
     Dates: start: 20080218, end: 20080317
  2. DEXAMETHASONE TAB [Concomitant]
  3. ENOXAPARIN SODIUM [Concomitant]
  4. AUGMENTIN '125' [Concomitant]
  5. ALLOPURINOL [Concomitant]
  6. OMEPRAZOLE [Concomitant]
  7. MORPHINE SULFATE [Concomitant]
  8. METOCLOPRAMIDE [Concomitant]
  9. SULFAMETHOXAZOLE AND TRIMETHOPRIM [Concomitant]
  10. GLICLAZIDE (GLICLAZIDE) [Concomitant]
  11. METFORMIN HCL [Concomitant]
  12. CALCICHEW (CALCIUM CARBONATE) [Concomitant]
  13. FUROSEMIDE [Concomitant]
  14. ACETAMINOPHEN [Concomitant]
  15. ACYCLOVIR [Concomitant]
  16. LISINOPRIL [Concomitant]
  17. NALOXONE [Concomitant]
  18. PREDNISOLONE [Concomitant]

REACTIONS (6)
  - ACUTE PULMONARY OEDEMA [None]
  - FLUID OVERLOAD [None]
  - HERPES ZOSTER [None]
  - LOWER RESPIRATORY TRACT INFECTION [None]
  - PNEUMOCYSTIS JIROVECI PNEUMONIA [None]
  - RENAL FAILURE [None]
